FAERS Safety Report 10060756 (Version 2)
Quarter: 2014Q2

REPORT INFORMATION
  Report Type: Spontaneous
  Country: US (occurrence: US)
  Receive Date: 20140404
  Receipt Date: 20140423
  Transmission Date: 20141212
  Serious: No
  Sender: FDA-Public Use
  Company Number: US-B.I. PHARMACEUTICALS,INC./RIDGEFIELD-2014-BI-13117BP

PATIENT
  Age: 70 Year
  Sex: Female

DRUGS (5)
  1. SPIRIVA [Suspect]
     Indication: EMPHYSEMA
     Dosage: 18 MCG
     Route: 055
     Dates: start: 201309
  2. HYDROXYCHLORQUINE [Concomitant]
     Indication: RHEUMATOID ARTHRITIS
     Dosage: 400 MG
     Route: 048
  3. OMEPRAZOLE [Concomitant]
     Indication: GASTROOESOPHAGEAL REFLUX DISEASE
     Dosage: 40 MG
     Route: 048
  4. RESTASIS [Concomitant]
     Indication: DRY EYE
     Dosage: DOSE PER APPLICATION :1 DROP TO EACH EYE; DAILY DOSE 4 DROPS
     Route: 050
  5. PATANOL [Concomitant]
     Indication: EYE ALLERGY
     Dosage: DOSE PER APPLICATION: 1 DROP TO EACH EYE; DAILY DOSE: 4 DROPS
     Route: 050

REACTIONS (3)
  - Episcleritis [Not Recovered/Not Resolved]
  - Product quality issue [Unknown]
  - Product quality issue [Unknown]
